FAERS Safety Report 4624434-5 (Version None)
Quarter: 2005Q1

REPORT INFORMATION
  Report Type: 
  Country: None (occurrence: None)
  Receive Date: 20050330
  Receipt Date: 20050330
  Transmission Date: 20050727
  Serious: Yes (Hospitalization, Disabling, Congenital Anomaly)
  Sender: FDA-Public Use
  Company Number: None

PATIENT
  Age: 58 Year
  Sex: Male
  Weight: 71.6683 kg

DRUGS (1)
  1. LEVAQUIN [Suspect]
     Dosage: ONE TABLET    ONCE A DAY    ORAL
     Route: 048

REACTIONS (1)
  - ROTATOR CUFF SYNDROME [None]
